FAERS Safety Report 13286109 (Version 3)
Quarter: 2017Q1

REPORT INFORMATION
  Report Type: Report from Study
  Country: US (occurrence: US)
  Receive Date: 20170301
  Receipt Date: 20170324
  Transmission Date: 20170428
  Serious: Yes (Other)
  Sender: FDA-Public Use
  Company Number: US-GILEAD-2016-0248717

PATIENT
  Age: 52 Year
  Sex: Female

DRUGS (1)
  1. LEDIPASVIR/SOFOSBUVIR [Suspect]
     Active Substance: LEDIPASVIR\SOFOSBUVIR
     Indication: HEPATITIS C
     Dosage: 1 DF, QD
     Route: 048
     Dates: start: 20161013

REACTIONS (19)
  - Nausea [Unknown]
  - Fatigue [Unknown]
  - Memory impairment [Unknown]
  - Vomiting [Unknown]
  - Weight decreased [Unknown]
  - Gallbladder disorder [Not Recovered/Not Resolved]
  - Diarrhoea [Unknown]
  - Alopecia [Unknown]
  - Bronchitis [Not Recovered/Not Resolved]
  - Decreased appetite [Not Recovered/Not Resolved]
  - Hypoaesthesia [Unknown]
  - Influenza [Unknown]
  - Ear infection [Not Recovered/Not Resolved]
  - Hepatic cirrhosis [Not Recovered/Not Resolved]
  - Malaise [Unknown]
  - Drug dose omission [Unknown]
  - Poor quality sleep [Not Recovered/Not Resolved]
  - Tremor [Unknown]
  - Procedural pain [Not Recovered/Not Resolved]
